FAERS Safety Report 17699387 (Version 5)
Quarter: 2020Q2

REPORT INFORMATION
  Report Type: Spontaneous
  Country: US (occurrence: US)
  Receive Date: 20200423
  Receipt Date: 20200604
  Transmission Date: 20200714
  Serious: No
  Sender: FDA-Public Use
  Company Number: US-PFIZER INC-2020161843

PATIENT
  Age: 73 Year
  Sex: Female

DRUGS (1)
  1. LYRICA [Suspect]
     Active Substance: PREGABALIN
     Dosage: 150 MG, AS NEEDED, 3 TIMES A DAY BY ORAL ROUTE AS NEEDED)
     Route: 048

REACTIONS (5)
  - Feeding disorder [Unknown]
  - Myalgia [Unknown]
  - Pain in extremity [Unknown]
  - Nerve injury [Unknown]
  - Hypoacusis [Unknown]
